FAERS Safety Report 6253771-6 (Version None)
Quarter: 2009Q2

REPORT INFORMATION
  Report Type: 
  Country: None (occurrence: None)
  Receive Date: 20090630
  Receipt Date: 20090617
  Transmission Date: 20091009
  Serious: Yes (Hospitalization)
  Sender: FDA-Public Use
  Company Number: 2009BM000136

PATIENT
  Age: 13 Year
  Sex: Female

DRUGS (2)
  1. NAGLAZYME [Suspect]
     Indication: MUCOPOLYSACCHARIDOSIS VI
     Dosage: ; IVDRP
     Route: 041
     Dates: start: 20071116, end: 20080201
  2. NAGLAZYME [Suspect]
     Indication: MUCOPOLYSACCHARIDOSIS VI
     Dosage: ; IVDRP
     Route: 041
     Dates: start: 20080730

REACTIONS (1)
  - INTRACRANIAL PRESSURE INCREASED [None]
